FAERS Safety Report 6932426-6 (Version None)
Quarter: 2010Q3

REPORT INFORMATION
  Report Type: 
  Country: None (occurrence: None)
  Receive Date: 20100819
  Receipt Date: 20100810
  Transmission Date: 20110219
  Serious: Yes (Hospitalization)
  Sender: FDA-Public Use
  Company Number: JP-PFIZER INC-2010066488

PATIENT
  Age: 60 Year
  Sex: Male
  Weight: 66 kg

DRUGS (3)
  1. SUNITINIB MALATE [Suspect]
     Indication: GASTROINTESTINAL STROMAL TUMOUR
     Dosage: 25 MG, 1X/DAY
     Route: 048
     Dates: start: 20080718
  2. LOXOPROFEN [Concomitant]
     Dosage: UNK
     Route: 048
     Dates: start: 20081211
  3. POSTERISAN FORTE [Concomitant]
     Dosage: UNK
     Route: 062
     Dates: start: 20080729

REACTIONS (1)
  - CHOLECYSTITIS [None]
